FAERS Safety Report 6945617-5 (Version None)
Quarter: 2010Q3

REPORT INFORMATION
  Report Type: 
  Country: None (occurrence: None)
  Receive Date: 20100827
  Receipt Date: 20100818
  Transmission Date: 20110219
  Serious: Yes (Hospitalization, Other)
  Sender: FDA-Public Use
  Company Number: CA-ABBOTT-10P-028-0665822-00

PATIENT
  Sex: Female
  Weight: 56.75 kg

DRUGS (6)
  1. HUMIRA [Suspect]
     Indication: CROHN'S DISEASE
     Route: 058
     Dates: start: 20100721, end: 20100804
  2. PREDNISONE [Concomitant]
     Indication: PRODUCT USED FOR UNKNOWN INDICATION
     Route: 048
  3. METHADONE [Concomitant]
     Indication: PAIN
     Dosage: WEANED OFF
  4. REMERON [Concomitant]
     Indication: PRODUCT USED FOR UNKNOWN INDICATION
     Dosage: 45 MG 1 TAB AT BEDTIME
     Route: 060
  5. BENTYLOL [Concomitant]
     Indication: GASTROINTESTINAL PAIN
     Dosage: 10 MG TWICE DAILY AS REQUIRED
     Route: 048
  6. GRAVOL TAB [Concomitant]
     Indication: VOMITING
     Dosage: 50 MG 1 TABLET CRUSHED PRN

REACTIONS (10)
  - BILE OUTPUT INCREASED [None]
  - BLOOD POTASSIUM DECREASED [None]
  - DELIRIUM [None]
  - GENERALISED OEDEMA [None]
  - MEDICATION RESIDUE [None]
  - NAUSEA [None]
  - OEDEMA [None]
  - PALPITATIONS [None]
  - VOMITING [None]
  - WEIGHT INCREASED [None]
